FAERS Safety Report 13030830 (Version 1)
Quarter: 2016Q4

REPORT INFORMATION
  Report Type: Spontaneous
  Country: US (occurrence: US)
  Receive Date: 20161215
  Receipt Date: 20161215
  Transmission Date: 20170207
  Serious: No
  Sender: FDA-Public Use
  Company Number: US-BAUSCH-BL-2016-023015

PATIENT

DRUGS (1)
  1. APRISO [Suspect]
     Active Substance: MESALAMINE
     Indication: PRODUCT USED FOR UNKNOWN INDICATION
     Dosage: 375 MG, TID, FOR A MONTH TOTAL
     Route: 065

REACTIONS (1)
  - Off label use [Unknown]
